FAERS Safety Report 15355314 (Version 1)
Quarter: 2018Q4

REPORT INFORMATION
  Report Type: Spontaneous
  Country: GB (occurrence: GB)
  Receive Date: 20180906
  Receipt Date: 20180906
  Transmission Date: 20190204
  Serious: Yes (Life-Threatening, Hospitalization)
  Sender: FDA-Public Use
  Company Number: GB-AUROBINDO-AUR-APL-2018-044963

PATIENT
  Age: 50 Year
  Sex: Male

DRUGS (1)
  1. ENTECAVIR FILM COATED TABLETS [Suspect]
     Active Substance: ENTECAVIR
     Indication: HEPATITIS B
     Dosage: 0.5 MILLIGRAM, ONCE A DAY
     Route: 048
     Dates: end: 20180821

REACTIONS (2)
  - Dysphagia [Unknown]
  - Infection [Unknown]

NARRATIVE: CASE EVENT DATE: 20180821
